FAERS Safety Report 20500168 (Version 2)
Quarter: 2022Q1

REPORT INFORMATION
  Report Type: Spontaneous
  Country: AT (occurrence: AT)
  Receive Date: 20220222
  Receipt Date: 20220222
  Transmission Date: 20220423
  Serious: Yes (Other)
  Sender: FDA-Public Use
  Company Number: AT-BoehringerIngelheim-2022-BI-155216

PATIENT
  Age: 46 Year
  Sex: Female

DRUGS (2)
  1. JARDIANCE [Suspect]
     Active Substance: EMPAGLIFLOZIN
     Indication: Diabetes mellitus
     Dosage: INITIALLY TAKEN IN THE MORNING AND EVENING, RECENTLY 1X PER DAY
  2. JARDIANCE [Suspect]
     Active Substance: EMPAGLIFLOZIN

REACTIONS (2)
  - Ketoacidosis [Unknown]
  - Abdominal pain upper [Unknown]
